FAERS Safety Report 7130632-1 (Version None)
Quarter: 2010Q4

REPORT INFORMATION
  Report Type: 
  Country: None (occurrence: None)
  Receive Date: 20101201
  Receipt Date: 20101125
  Transmission Date: 20110411
  Serious: Yes (Death, Life-Threatening)
  Sender: FDA-Public Use
  Company Number: JP-SANOFI-AVENTIS-2010SA071625

PATIENT
  Age: 80 Year
  Sex: Male
  Weight: 70 kg

DRUGS (19)
  1. PLAVIX [Suspect]
     Route: 048
     Dates: start: 20100501, end: 20100501
  2. PLAVIX [Suspect]
     Route: 048
     Dates: start: 20100502, end: 20100511
  3. ASPIRIN [Suspect]
     Route: 048
     Dates: start: 20100501, end: 20100510
  4. MEVALOTIN [Suspect]
     Route: 048
     Dates: start: 20100501, end: 20100503
  5. HEPARIN [Concomitant]
     Route: 042
     Dates: start: 20100501
  6. FAMOTIDINE [Concomitant]
     Route: 048
     Dates: start: 20100501
  7. MAGNESIUM OXIDE [Concomitant]
     Indication: CONSTIPATION PROPHYLAXIS
     Route: 048
     Dates: start: 20100501, end: 20100503
  8. FRANDOL [Concomitant]
     Dates: start: 20100501
  9. RISPERIDONE [Concomitant]
     Route: 048
     Dates: start: 20100502, end: 20100503
  10. TENORMIN [Concomitant]
     Route: 048
     Dates: start: 20100503, end: 20100504
  11. NITOROL [Concomitant]
     Route: 042
     Dates: start: 20100501, end: 20100502
  12. CEFAZOLIN SODIUM [Concomitant]
     Indication: INFECTION PROPHYLAXIS
     Route: 042
     Dates: start: 20100503
  13. LASIX [Concomitant]
     Route: 042
     Dates: start: 20100503
  14. DOPAMINE HCL [Concomitant]
     Indication: CARDIAC FAILURE
     Route: 042
     Dates: start: 20100503
  15. MIDAZOLAM [Concomitant]
     Indication: SEDATION
     Route: 042
     Dates: start: 20100503
  16. LEPETAN [Concomitant]
     Indication: SEDATION
     Route: 042
     Dates: start: 20100503
  17. DOBUTAMINE [Concomitant]
     Indication: CARDIAC FAILURE
     Route: 042
     Dates: start: 20100504
  18. OTSUKA MV [Concomitant]
     Route: 042
     Dates: start: 20100504
  19. HUMULIN R [Concomitant]
     Indication: HYPERGLYCAEMIA
     Dates: start: 20100505

REACTIONS (2)
  - HEPATIC FUNCTION ABNORMAL [None]
  - RENAL IMPAIRMENT [None]
